FAERS Safety Report 5028428-X (Version None)
Quarter: 2006Q2

REPORT INFORMATION
  Report Type: 
  Country: None (occurrence: None)
  Receive Date: 20060617
  Receipt Date: 20060612
  Transmission Date: 20061013
  Serious: Yes (Death, Hospitalization)
  Sender: FDA-Public Use
  Company Number: 2006AC01103

PATIENT
  Age: 43 Year
  Sex: Female

DRUGS (6)
  1. SEROQUEL [Suspect]
     Route: 048
  2. BENZOYLECOGNINE [Suspect]
  3. OXYCODONE HCL [Suspect]
  4. PAROXETINE HCL [Suspect]
  5. DIAZEPAM [Suspect]
  6. NORDIAZEPAM [Suspect]

REACTIONS (4)
  - AORTIC ARTERIOSCLEROSIS [None]
  - HEPATIC CONGESTION [None]
  - MULTIPLE DRUG OVERDOSE [None]
  - PULMONARY CONGESTION [None]
